FAERS Safety Report 9613013 (Version 1)
Quarter: 2013Q4

REPORT INFORMATION
  Report Type: Spontaneous
  Country: US (occurrence: US)
  Receive Date: 20131010
  Receipt Date: 20131010
  Transmission Date: 20140711
  Serious: Yes (Death, Hospitalization)
  Sender: FDA-Public Use
  Company Number: US-BAXTER-2013BAX038987

PATIENT
  Age: 62 Year
  Sex: Female

DRUGS (4)
  1. DIANEAL LOW CALCIUM [Suspect]
     Indication: PERITONEAL DIALYSIS
     Route: 033
     Dates: end: 20131001
  2. DIANEAL LOW CALCIUM [Suspect]
     Route: 033
     Dates: end: 20131001
  3. DIANEAL LOW CALCIUM [Suspect]
     Indication: PERITONEAL DIALYSIS
     Route: 033
     Dates: end: 20131001
  4. DIANEAL LOW CALCIUM [Suspect]
     Route: 033
     Dates: end: 20131001

REACTIONS (3)
  - Cardiac arrest [Fatal]
  - Mental status changes [Unknown]
  - Blood glucose abnormal [Unknown]
